FAERS Safety Report 25236833 (Version 1)
Quarter: 2025Q2

REPORT INFORMATION
  Report Type: Spontaneous
  Country: CN (occurrence: CN)
  Receive Date: 20250424
  Receipt Date: 20250424
  Transmission Date: 20250717
  Serious: Yes (Hospitalization, Other)
  Sender: AMGEN
  Company Number: CN-PFIZER INC-PV202500045732

PATIENT
  Age: 21 Year
  Sex: Male
  Weight: 67 kg

DRUGS (2)
  1. ETANERCEPT [Suspect]
     Active Substance: ETANERCEPT
     Indication: Ankylosing spondylitis
     Dosage: 25 MG, 2X/WEEK
     Route: 058
     Dates: start: 20240927, end: 20250210
  2. CELECOXIB [Concomitant]
     Active Substance: CELECOXIB
     Indication: Sacral pain
     Dosage: 0.2 G, DAILY
     Route: 065

REACTIONS (9)
  - Neurotoxicity [Unknown]
  - Dizziness [Unknown]
  - Palpitations [Unknown]
  - Eye swelling [Unknown]
  - Sinus tachycardia [Unknown]
  - Sinus bradycardia [Unknown]
  - Supraventricular extrasystoles [Unknown]
  - Conjunctival haemorrhage [Unknown]
  - Dry eye [Unknown]

NARRATIVE: CASE EVENT DATE: 20250101
